FAERS Safety Report 4395694-3 (Version None)
Quarter: 2004Q3

REPORT INFORMATION
  Report Type: 
  Country: None (occurrence: None)
  Receive Date: 20040707
  Receipt Date: 20040629
  Transmission Date: 20050211
  Serious: Yes (Life-Threatening, Hospitalization)
  Sender: FDA-Public Use
  Company Number: 200410438BNE

PATIENT
  Age: 67 Year
  Sex: Female

DRUGS (2)
  1. ASPIRIN [Suspect]
     Indication: VENTRICULAR HYPERTROPHY
     Dosage: 75 MG, TOTAL DAILY, ORAL
     Route: 048
     Dates: start: 20010101, end: 20040614
  2. LISINOPRIL [Concomitant]

REACTIONS (3)
  - DUODENAL ULCER PERFORATION [None]
  - HAEMATEMESIS [None]
  - PERITONITIS [None]
